FAERS Safety Report 9289114 (Version 2)
Quarter: 2013Q2

REPORT INFORMATION
  Report Type: Spontaneous
  Country: US (occurrence: US)
  Receive Date: 20130514
  Receipt Date: 20130603
  Transmission Date: 20140414
  Serious: Yes (Other)
  Sender: FDA-Public Use
  Company Number: US-PFIZER INC-2013144174

PATIENT
  Age: 7 Year
  Sex: Male
  Weight: 25.85 kg

DRUGS (1)
  1. XYNTHA [Suspect]
     Indication: HAEMOPHILIA
     Dosage: 1000 IU, 3X/WEEK

REACTIONS (1)
  - Respiratory arrest [Recovered/Resolved]
